FAERS Safety Report 6473098-7 (Version None)
Quarter: 2009Q4

REPORT INFORMATION
  Report Type: 
  Country: None (occurrence: None)
  Receive Date: 20091204
  Receipt Date: 20080618
  Transmission Date: 20100525
  Serious: Yes (Other)
  Sender: FDA-Public Use
  Company Number: US-ELI_LILLY_AND_COMPANY-US200806004173

PATIENT
  Age: 50 Year
  Sex: Female

DRUGS (2)
  1. FORTEO [Suspect]
     Dates: start: 20030101, end: 20040101
  2. FORTEO [Suspect]
     Dates: start: 20080501

REACTIONS (4)
  - BACK DISORDER [None]
  - BACK PAIN [None]
  - HEPATIC FAILURE [None]
  - LIVER TRANSPLANT REJECTION [None]
